FAERS Safety Report 8012236-1 (Version None)
Quarter: 2011Q4

REPORT INFORMATION
  Report Type: 
  Country: None (occurrence: None)
  Receive Date: 20111228
  Receipt Date: 20111219
  Transmission Date: 20120403
  Serious: Yes (Congenital Anomaly, Other)
  Sender: FDA-Public Use
  Company Number: DE-ASTRAZENECA-2011SE76648

PATIENT
  Age: 0 Week
  Sex: Male
  Weight: 3 kg

DRUGS (8)
  1. LEVOTHYROXINE SODIUM [Concomitant]
     Dosage: SSW 6-12: 150?G
     Route: 064
  2. LEVOTHYROXINE SODIUM [Concomitant]
     Indication: THYROIDECTOMY
     Dosage: 225 [?G/D ]/ SSW 0-6: 100?G
     Route: 064
     Dates: start: 20101104
  3. LEVOTHYROXINE SODIUM [Concomitant]
     Dosage: WK 14-36: 175-225 ?G/D
     Route: 064
     Dates: end: 20110716
  4. SEROQUEL [Suspect]
     Dosage: WEEK 14-20: 100 MG DAILY
     Route: 064
  5. FOL PLUS [Concomitant]
     Indication: PROPHYLAXIS OF NEURAL TUBE DEFECT
     Dosage: 0.4 [MG/D ]
     Route: 064
     Dates: start: 20100915, end: 20110203
  6. SEROQUEL [Suspect]
     Dosage: WEEK 21-32: SLOW REDUCTION TO 25 MG DAILY
     Route: 064
  7. SEROQUEL [Suspect]
     Indication: BIPOLAR I DISORDER
     Dosage: WEEK 0-13: 200 MG DAILY
     Route: 064
  8. LEVOTHYROXINE SODIUM [Concomitant]
     Dosage: WK 12-14: 200?G
     Route: 064

REACTIONS (3)
  - ATRIAL SEPTAL DEFECT [None]
  - CONGENITAL PNEUMONIA [None]
  - PATENT DUCTUS ARTERIOSUS [None]
